FAERS Safety Report 4520155-8 (Version None)
Quarter: 2004Q4

REPORT INFORMATION
  Report Type: 
  Country: None (occurrence: None)
  Receive Date: 20041029
  Receipt Date: 20040818
  Transmission Date: 20050328
  Serious: No
  Sender: FDA-Public Use
  Company Number: 2004-119579-NL

PATIENT
  Age: 35 Year
  Sex: Female
  Weight: 66.5 kg

DRUGS (2)
  1. NUVARING [Suspect]
     Indication: CONTRACEPTION
     Dosage: DF DAILY, VAGINAL
     Route: 067
     Dates: start: 20040401, end: 20040808
  2. SYNTHROID [Concomitant]

REACTIONS (2)
  - INSOMNIA [None]
  - MOOD SWINGS [None]
